FAERS Safety Report 5415506-6 (Version None)
Quarter: 2007Q3

REPORT INFORMATION
  Report Type: 
  Country: None (occurrence: None)
  Receive Date: 20070813
  Receipt Date: 20070802
  Transmission Date: 20080115
  Serious: Yes (Hospitalization)
  Sender: FDA-Public Use
  Company Number: 028-C5013-07080287

PATIENT
  Age: 65 Year
  Sex: Male
  Weight: 79.2 kg

DRUGS (2)
  1. CC-5013 (LENALIDOMIDE) (CAPSULES) [Suspect]
     Indication: MULTIPLE MYELOMA
     Dosage: 25 MG, ORAL
     Route: 048
     Dates: start: 20070524
  2. DEXAMETHASONE TAB [Suspect]
     Indication: MULTIPLE MYELOMA
     Dosage: 40 MG, DAYS 1-4, 9-12, 17-20,
     Dates: start: 20070524

REACTIONS (10)
  - AZOTAEMIA [None]
  - BLOOD CREATININE INCREASED [None]
  - CONTUSION [None]
  - DYSPHAGIA [None]
  - HAEMOGLOBIN DECREASED [None]
  - MOUTH HAEMORRHAGE [None]
  - ORAL MUCOSAL BLISTERING [None]
  - PETECHIAE [None]
  - PLATELET COUNT DECREASED [None]
  - TONGUE BLISTERING [None]
